FAERS Safety Report 8044325-X (Version None)
Quarter: 2011Q4

REPORT INFORMATION
  Report Type: 
  Country: None (occurrence: None)
  Receive Date: 20111202
  Receipt Date: 20101206
  Transmission Date: 20120403
  Serious: Yes (Other)
  Sender: FDA-Public Use
  Company Number: 2010SP063436

PATIENT
  Age: 46 Year
  Sex: Female

DRUGS (1)
  1. NUVARING [Suspect]
     Indication: PRODUCT USED FOR UNKNOWN INDICATION
     Dosage: 1DF; VAG
     Route: 067

REACTIONS (3)
  - DEEP VEIN THROMBOSIS [None]
  - DEHYDRATION [None]
  - GASTROINTESTINAL INFECTION [None]
